FAERS Safety Report 17881471 (Version 1)
Quarter: 2020Q2

REPORT INFORMATION
  Report Type: Spontaneous
  Country: US (occurrence: US)
  Receive Date: 20200610
  Receipt Date: 20200610
  Transmission Date: 20200714
  Serious: No
  Sender: FDA-Public Use
  Company Number: US-COLLEGIUM PHARMACEUTICAL, INC.-2019CGM00282

PATIENT
  Age: 59 Year
  Sex: Male
  Weight: 50.79 kg

DRUGS (9)
  1. CREON [Concomitant]
     Active Substance: PANCRELIPASE AMYLASE\PANCRELIPASE LIPASE\PANCRELIPASE PROTEASE
     Dosage: 36000 U BEFORE MEAL
  2. ROSUVASTATIN. [Concomitant]
     Active Substance: ROSUVASTATIN
     Dosage: 40 MG, 1X/DAY
     Route: 048
  3. ALBUTEROL SULFATE. [Concomitant]
     Active Substance: ALBUTEROL SULFATE
     Dosage: 2 INHALATIONS, EVERY 4 HOURS AS NEEDED
  4. NOVOLOG [Concomitant]
     Active Substance: INSULIN ASPART
     Dosage: 5 U, 3X/DAY BEFORE MEALS
     Route: 058
  5. XTAMPZA ER [Suspect]
     Active Substance: OXYCODONE
     Indication: CANCER PAIN
     Dosage: 72 MG, 2X/DAY WITH A MEAL/FOOD
     Route: 048
     Dates: start: 20190520, end: 2019
  6. LEVEMIR [Concomitant]
     Active Substance: INSULIN DETEMIR
     Dosage: 20 U, 1X/DAY
     Route: 058
  7. ENALAPRIL MALEATE. [Concomitant]
     Active Substance: ENALAPRIL MALEATE
     Dosage: 40 MG, 1X/DAY
     Route: 048
  8. ONDANSETRON [Concomitant]
     Active Substance: ONDANSETRON
     Dosage: 8 MG, 3X/DAY AS NEEDED
     Route: 048
  9. SILDENAFIL. [Concomitant]
     Active Substance: SILDENAFIL
     Dosage: 100 MG, DAILY AS NEEDED
     Route: 048

REACTIONS (6)
  - Constipation [Recovered/Resolved]
  - Faeces hard [Recovered/Resolved]
  - Disturbance in attention [Recovered/Resolved]
  - Feeling abnormal [Recovered/Resolved]
  - Infrequent bowel movements [Recovered/Resolved]
  - Product substitution issue [Recovered/Resolved]

NARRATIVE: CASE EVENT DATE: 2019
